FAERS Safety Report 8212939-X (Version None)
Quarter: 2012Q1

REPORT INFORMATION
  Report Type: 
  Country: None (occurrence: None)
  Receive Date: 20120315
  Receipt Date: 20120307
  Transmission Date: 20120608
  Serious: Yes (Hospitalization, Congenital Anomaly)
  Sender: FDA-Public Use
  Company Number: DE-US-EMD SERONO, INC.-7083757

PATIENT
  Sex: Female
  Weight: 1.4 kg

DRUGS (1)
  1. REBIF [Suspect]
     Indication: PRODUCT USED FOR UNKNOWN INDICATION
     Route: 064

REACTIONS (8)
  - FOETAL EXPOSURE DURING PREGNANCY [None]
  - PATENT DUCTUS ARTERIOSUS [None]
  - PULMONARY VALVE STENOSIS [None]
  - PREMATURE BABY [None]
  - CARDIO-RESPIRATORY DISTRESS [None]
  - HYPERBILIRUBINAEMIA [None]
  - FEEDING DISORDER NEONATAL [None]
  - BODY TEMPERATURE FLUCTUATION [None]
